FAERS Safety Report 9901189 (Version 1)
Quarter: 2014Q1

REPORT INFORMATION
  Report Type: Spontaneous
  Country: US (occurrence: US)
  Receive Date: 20140217
  Receipt Date: 20140217
  Transmission Date: 20141002
  Serious: No
  Sender: FDA-Public Use
  Company Number: US-BAYER-2014-016824

PATIENT
  Age: 62 Year
  Sex: Female

DRUGS (5)
  1. FINACEA [Suspect]
  2. AMLODIPINE [Concomitant]
     Indication: HYPERTENSION
     Dosage: UNK UNK, QD
     Route: 048
  3. FISH OIL [Concomitant]
     Indication: SUPPLEMENTATION THERAPY
     Dosage: UNK UNK, QD
     Route: 048
  4. VITAMIN C [Concomitant]
     Indication: VITAMIN SUPPLEMENTATION
     Dosage: UNK UNK, QD
     Route: 048
  5. NEUTROGENA CLEAR PORE [Concomitant]
     Dosage: UNK UNK, BID
     Route: 061

REACTIONS (1)
  - Drug ineffective [None]
